FAERS Safety Report 13773294 (Version 2)
Quarter: 2018Q3

REPORT INFORMATION
  Report Type: Spontaneous
  Country: US (occurrence: US)
  Receive Date: 20170720
  Receipt Date: 20180705
  Transmission Date: 20181010
  Serious: No
  Sender: FDA-Public Use
  Company Number: US-GALDERMA-US17000893

PATIENT
  Age: 38 Year
  Sex: Female

DRUGS (2)
  1. ORACEA [Suspect]
     Active Substance: DOXYCYCLINE
     Indication: ACNE
     Route: 048
     Dates: start: 201609
  2. LEVOTHYROXINE. [Concomitant]
     Active Substance: LEVOTHYROXINE
     Indication: HYPOTHYROIDISM
     Dates: start: 200407

REACTIONS (2)
  - Abdominal pain upper [Not Recovered/Not Resolved]
  - Abdominal discomfort [Not Recovered/Not Resolved]
